FAERS Safety Report 21521651 (Version 1)
Quarter: 2022Q4

REPORT INFORMATION
  Report Type: Report from Study
  Country: US (occurrence: US)
  Receive Date: 20221028
  Receipt Date: 20221028
  Transmission Date: 20230113
  Serious: Yes (Hospitalization)
  Sender: FDA-Public Use
  Company Number: US-ABBVIE-4178432

PATIENT
  Sex: Female

DRUGS (3)
  1. HUMIRA [Suspect]
     Active Substance: ADALIMUMAB
     Indication: Ankylosing spondylitis
     Route: 058
     Dates: start: 20211103
  2. HUMIRA [Suspect]
     Active Substance: ADALIMUMAB
     Route: 058
  3. CIPRO [Suspect]
     Active Substance: CIPROFLOXACIN HYDROCHLORIDE
     Indication: Cystitis
     Dates: start: 2022, end: 20221023

REACTIONS (14)
  - Knee arthroplasty [Unknown]
  - Cystitis [Unknown]
  - Arthralgia [Unknown]
  - Joint noise [Unknown]
  - Off label use [Unknown]
  - Pain [Unknown]
  - Feeling abnormal [Unknown]
  - Decreased appetite [Unknown]
  - Weight decreased [Unknown]
  - Arthralgia [Unknown]
  - Nervousness [Unknown]
  - Limb asymmetry [Unknown]
  - Spinal disorder [Unknown]
  - Asthenia [Unknown]

NARRATIVE: CASE EVENT DATE: 20220101
